FAERS Safety Report 7903917-6 (Version None)
Quarter: 2011Q4

REPORT INFORMATION
  Report Type: 
  Country: None (occurrence: None)
  Receive Date: 20111109
  Receipt Date: 20111102
  Transmission Date: 20120403
  Serious: Yes (Life-Threatening, Hospitalization)
  Sender: FDA-Public Use
  Company Number: JP-BRISTOL-MYERS SQUIBB COMPANY-16194318

PATIENT
  Age: 57 Year
  Sex: Female

DRUGS (5)
  1. ORENCIA [Suspect]
     Indication: RHEUMATOID ARTHRITIS
     Dosage: 13TH DOSE ON 07-OCT-2011.
     Route: 041
     Dates: start: 20101126, end: 20110101
  2. BARACLUDE [Concomitant]
  3. STEROIDS [Concomitant]
  4. LOXONIN [Concomitant]
  5. ARAVA [Suspect]
     Route: 048

REACTIONS (1)
  - PANCREATITIS ACUTE [None]
